FAERS Safety Report 20164514 (Version 1)
Quarter: 2021Q4

REPORT INFORMATION
  Report Type: Spontaneous
  Country: AR (occurrence: None)
  Receive Date: 20211209
  Receipt Date: 20211209
  Transmission Date: 20220304
  Serious: Yes (Other)
  Sender: FDA-Public Use
  Company Number: 2021A853687

PATIENT
  Age: 76 Year
  Sex: Female

DRUGS (3)
  1. FULVESTRANT [Suspect]
     Active Substance: FULVESTRANT
     Route: 030
  2. IBRANCE [Suspect]
     Active Substance: PALBOCICLIB
     Indication: Breast cancer metastatic
     Dosage: 125 MG, CYCLIC, DAILY SCHEME 3X1
     Route: 048
     Dates: start: 20181002
  3. LETROZOLE [Concomitant]
     Active Substance: LETROZOLE

REACTIONS (3)
  - Fracture [Unknown]
  - Malignant neoplasm progression [Not Recovered/Not Resolved]
  - Intentional product misuse [Not Recovered/Not Resolved]
